FAERS Safety Report 21708081 (Version 1)
Quarter: 2022Q4

REPORT INFORMATION
  Report Type: Other
  Country: US (occurrence: US)
  Receive Date: 20221209
  Receipt Date: 20221209
  Transmission Date: 20230112
  Serious: Yes (Hospitalization, Other)
  Sender: FDA-Public Use
  Company Number: US-Covis Pharma GmbH-2022COV22634

PATIENT
  Age: 33 Year
  Sex: Female
  Weight: 60.836 kg

DRUGS (1)
  1. MAKENA [Suspect]
     Active Substance: HYDROXYPROGESTERONE CAPROATE
     Indication: Premature delivery
     Route: 058
     Dates: start: 2022, end: 20221129

REACTIONS (2)
  - Pain [Recovered/Resolved with Sequelae]
  - Premature delivery [Recovered/Resolved with Sequelae]

NARRATIVE: CASE EVENT DATE: 20221119
